FAERS Safety Report 24141488 (Version 2)
Quarter: 2024Q3

REPORT INFORMATION
  Report Type: Spontaneous
  Country: US (occurrence: US)
  Receive Date: 20240726
  Receipt Date: 20240831
  Transmission Date: 20241016
  Serious: No
  Sender: GLAXOSMITHKLINE
  Company Number: US-GSKCCFUS-Case-02057033_AE-113846

PATIENT
  Sex: Female
  Weight: 60.6 kg

DRUGS (2)
  1. TRELEGY ELLIPTA [Suspect]
     Active Substance: FLUTICASONE FUROATE\UMECLIDINIUM BROMIDE\VILANTEROL TRIFENATATE
     Indication: Product used for unknown indication
     Dosage: 1 PUFF(S), QD,200/62.5/25MCG
     Route: 055
     Dates: start: 20240613
  2. TYLENOL [Concomitant]
     Active Substance: ACETAMINOPHEN
     Indication: Product used for unknown indication
     Dosage: UNK

REACTIONS (6)
  - Taste disorder [Recovering/Resolving]
  - Sensation of foreign body [Recovered/Resolved]
  - Tremor [Unknown]
  - Fatigue [Unknown]
  - Muscle tightness [Unknown]
  - Burning sensation [Unknown]
